FAERS Safety Report 6384941-4 (Version None)
Quarter: 2009Q4

REPORT INFORMATION
  Report Type: 
  Country: None (occurrence: None)
  Receive Date: 20091002
  Receipt Date: 20090821
  Transmission Date: 20100525
  Serious: No
  Sender: FDA-Public Use
  Company Number: A0803534A

PATIENT
  Age: 68 Year
  Sex: Male

DRUGS (20)
  1. REQUIP XL [Suspect]
     Indication: PARKINSON'S DISEASE
     Dosage: 2MG PER DAY
     Route: 048
     Dates: start: 20090810
  2. INSULIN [Concomitant]
  3. HYDROCHLOROTHIAZIDE [Concomitant]
  4. UNKNOWN MEDICATION [Concomitant]
  5. ALLEGRA [Concomitant]
  6. NEXIUM [Concomitant]
  7. GLUCOSAMINE [Concomitant]
  8. ATROVENT [Concomitant]
  9. LYRICA [Concomitant]
  10. PROCARDIA [Concomitant]
  11. LOVASTATIN [Concomitant]
  12. CARBIDOPA [Concomitant]
  13. IMIPRAMINE [Concomitant]
  14. LATANOPROST [Concomitant]
  15. CARDURA [Concomitant]
  16. VESICARE [Concomitant]
  17. FERROUS SULFATE TAB [Concomitant]
  18. ALLEGRA [Concomitant]
  19. MULTI-VITAMIN [Concomitant]
  20. DOMPERIDONE [Concomitant]

REACTIONS (1)
  - HAIR COLOUR CHANGES [None]
